FAERS Safety Report 17472323 (Version 1)
Quarter: 2020Q1

REPORT INFORMATION
  Report Type: Spontaneous
  Country: US (occurrence: US)
  Receive Date: 20200228
  Receipt Date: 20200228
  Transmission Date: 20200409
  Serious: No
  Sender: FDA-Public Use
  Company Number: US-GLAXOSMITHKLINE-US2020030239

PATIENT
  Sex: Female

DRUGS (2)
  1. ARNUITY ELLIPTA [Suspect]
     Active Substance: FLUTICASONE FUROATE
     Indication: CHRONIC OBSTRUCTIVE PULMONARY DISEASE
     Dosage: 1 PUFF(S), QD
     Route: 048
     Dates: end: 20200218
  2. ALBUTEROL SULFATE INHALATION POWDER [Suspect]
     Active Substance: ALBUTEROL SULFATE
     Indication: CHRONIC OBSTRUCTIVE PULMONARY DISEASE
     Dosage: UNK
     Route: 065

REACTIONS (6)
  - Swollen tongue [Recovering/Resolving]
  - Oropharyngeal pain [Not Recovered/Not Resolved]
  - Hypersomnia [Unknown]
  - Dysphonia [Recovering/Resolving]
  - Oral pain [Not Recovered/Not Resolved]
  - Chest discomfort [Recovering/Resolving]
